FAERS Safety Report 17409670 (Version 4)
Quarter: 2020Q1

REPORT INFORMATION
  Report Type: Report from Study
  Country: US (occurrence: US)
  Receive Date: 20200212
  Receipt Date: 20200310
  Transmission Date: 20200409
  Serious: Yes (Death, Hospitalization, Other)
  Sender: FDA-Public Use
  Company Number: US-ACTELION-A-NJ2020-200664

PATIENT
  Sex: Female
  Weight: 68.03 kg

DRUGS (6)
  1. VELETRI [Suspect]
     Active Substance: EPOPROSTENOL
     Indication: PULMONARY ARTERIAL HYPERTENSION
     Dosage: 75 NG/KG, PER MIN
     Route: 042
  2. OPSUMIT [Suspect]
     Active Substance: MACITENTAN
     Indication: PULMONARY ARTERIAL HYPERTENSION
     Dosage: 10 MG, QD
     Route: 048
  3. VELETRI [Suspect]
     Active Substance: EPOPROSTENOL
     Dosage: 80 NG/KG, PER MIN
     Route: 042
  4. REMODULIN [Concomitant]
     Active Substance: TREPROSTINIL
  5. SILDENAFIL CITRATE. [Concomitant]
     Active Substance: SILDENAFIL CITRATE
  6. OPSUMIT [Suspect]
     Active Substance: MACITENTAN
     Dosage: 10 MG, QD
     Route: 048
     Dates: start: 20191223, end: 202001

REACTIONS (9)
  - Malaise [Unknown]
  - Asthenia [Unknown]
  - Hospitalisation [Unknown]
  - Death [Fatal]
  - Weight decreased [Unknown]
  - Terminal state [Unknown]
  - Platelet count decreased [Unknown]
  - Therapy change [Unknown]
  - Disorganised speech [Unknown]
